FAERS Safety Report 8488346-1 (Version None)
Quarter: 2012Q3

REPORT INFORMATION
  Report Type: 
  Country: None (occurrence: None)
  Receive Date: 20120705
  Receipt Date: 20120704
  Transmission Date: 20120928
  Serious: Yes (Death, Other)
  Sender: FDA-Public Use
  Company Number: PHHY2012KR056975

PATIENT
  Age: 54 Year
  Sex: Male

DRUGS (4)
  1. BASILIXIMAB [Suspect]
     Indication: LIVER TRANSPLANT
     Dosage: UNK UKN, UNK
     Dates: start: 20081201
  2. CORTICOSTEROIDS [Concomitant]
     Dosage: UNK UKN, UNK
  3. MYCOPHENOLATE MOFETIL [Concomitant]
     Dosage: UNK UKN, UNK
  4. TACROLIMUS [Concomitant]
     Dosage: UNK UKN, UNK

REACTIONS (6)
  - PANCREATIC CARCINOMA RECURRENT [None]
  - HAEMORRHAGE [None]
  - JAUNDICE [None]
  - ADENOCARCINOMA [None]
  - BILE DUCT STENOSIS [None]
  - VASCULAR PSEUDOANEURYSM [None]
